FAERS Safety Report 8157106-3 (Version None)
Quarter: 2012Q1

REPORT INFORMATION
  Report Type: 
  Country: None (occurrence: None)
  Receive Date: 20120222
  Receipt Date: 20120214
  Transmission Date: 20120608
  Serious: Yes (Hospitalization)
  Sender: FDA-Public Use
  Company Number: US-ABBOTT-12P-163-0904464-00

PATIENT

DRUGS (1)
  1. HUMIRA [Suspect]
     Indication: ANKYLOSING SPONDYLITIS
     Dates: end: 20120101

REACTIONS (4)
  - GOUT [None]
  - OEDEMA PERIPHERAL [None]
  - ERYTHEMA [None]
  - ANKYLOSING SPONDYLITIS [None]
